FAERS Safety Report 8530946-4 (Version None)
Quarter: 2012Q3

REPORT INFORMATION
  Report Type: 
  Country: None (occurrence: None)
  Receive Date: 20120723
  Receipt Date: 20120718
  Transmission Date: 20120928
  Serious: Yes (Other)
  Sender: FDA-Public Use
  Company Number: US-AMGEN-USASP2012044856

PATIENT
  Age: 85 Year
  Sex: Female

DRUGS (6)
  1. ASPIRIN [Concomitant]
     Dosage: 1 UNK, UNK
  2. PROLIA [Suspect]
     Indication: OSTEOPOROSIS POSTMENOPAUSAL
     Dates: start: 20120323
  3. CALCIUM [Concomitant]
  4. MULTIVITAMIN                       /00097801/ [Concomitant]
  5. XGEVA [Suspect]
     Indication: OSTEOPOROSIS POSTMENOPAUSAL
     Dosage: 120 MG, Q6MO
     Dates: start: 20110101
  6. VITAMIN D [Concomitant]
     Dosage: 1 UNK, UNK

REACTIONS (3)
  - MALIGNANT MELANOMA [None]
  - PRURITUS [None]
  - ERYTHEMA [None]
